FAERS Safety Report 7799092-1 (Version None)
Quarter: 2011Q4

REPORT INFORMATION
  Report Type: 
  Country: None (occurrence: None)
  Receive Date: 20111006
  Receipt Date: 20110930
  Transmission Date: 20120403
  Serious: Yes (Life-Threatening, Hospitalization, Other)
  Sender: FDA-Public Use
  Company Number: AT-PFIZER INC-2011234765

PATIENT
  Age: 30 Year
  Sex: Male
  Weight: 95 kg

DRUGS (5)
  1. ESCITALOPRAM [Suspect]
     Dosage: 20 MG, 1X/DAY
     Route: 048
     Dates: start: 20100601
  2. ABILIFY [Concomitant]
     Dosage: 5 MG, 1X/DAY
     Route: 048
     Dates: start: 20110201
  3. SEROQUEL [Suspect]
     Dosage: 50 MG, 1X/DAY
     Route: 048
     Dates: start: 20100101, end: 20110201
  4. DOMINAL [Suspect]
     Dosage: 80 MG, 1X/DAY
     Route: 048
     Dates: start: 20100601
  5. EFFEXOR XR [Suspect]
     Dosage: 225 MG, 1X/DAY
     Route: 048
     Dates: start: 20100101, end: 20100601

REACTIONS (5)
  - WEIGHT INCREASED [None]
  - PATHOLOGICAL GAMBLING [None]
  - POST-TRAUMATIC STRESS DISORDER [None]
  - DEPRESSION [None]
  - BLOOD TRIGLYCERIDES INCREASED [None]
